FAERS Safety Report 5190114-3 (Version None)
Quarter: 2006Q4

REPORT INFORMATION
  Report Type: 
  Country: None (occurrence: None)
  Receive Date: 20061222
  Receipt Date: 20061002
  Transmission Date: 20070319
  Serious: Yes (Hospitalization)
  Sender: FDA-Public Use
  Company Number: US-BRISTOL-MYERS SQUIBB COMPANY-13527965

PATIENT
  Age: 66 Year
  Sex: Female

DRUGS (13)
  1. CETUXIMAB [Suspect]
     Indication: NON-SMALL CELL LUNG CANCER
     Route: 042
     Dates: start: 20060626, end: 20060626
  2. TAXOL [Suspect]
     Indication: NON-SMALL CELL LUNG CANCER
     Route: 042
     Dates: start: 20060911, end: 20060911
  3. CARBOPLATIN [Suspect]
     Indication: NON-SMALL CELL LUNG CANCER
     Route: 042
     Dates: start: 20060911, end: 20060911
  4. KEFLEX [Concomitant]
  5. HYDROCHLOROTHIAZIDE [Concomitant]
  6. DIOVAN [Concomitant]
  7. ACTOS [Concomitant]
  8. METFORMIN HCL [Concomitant]
  9. GLIPIZIDE [Concomitant]
  10. LIPITOR [Concomitant]
  11. CRESTOR [Concomitant]
  12. MEGACE [Concomitant]
  13. ZETIA [Concomitant]

REACTIONS (1)
  - HYPOGLYCAEMIA [None]
